FAERS Safety Report 4592476-4 (Version None)
Quarter: 2005Q1

REPORT INFORMATION
  Report Type: 
  Country: None (occurrence: None)
  Receive Date: 20050222
  Receipt Date: 20050214
  Transmission Date: 20050727
  Serious: Yes (Hospitalization)
  Sender: FDA-Public Use
  Company Number: US014705

PATIENT
  Age: 24 Year
  Sex: Female

DRUGS (1)
  1. PROVIGIL [Suspect]

REACTIONS (3)
  - MEDICATION ERROR [None]
  - PNEUMONIA [None]
  - SELF-MEDICATION [None]
